FAERS Safety Report 12872200 (Version 1)
Quarter: 2016Q4

REPORT INFORMATION
  Report Type: Spontaneous
  Country: DE (occurrence: DE)
  Receive Date: 20161021
  Receipt Date: 20161021
  Transmission Date: 20170207
  Serious: Yes (Other)
  Sender: FDA-Public Use
  Company Number: DE-AMGEN-DEUSP2016143281

PATIENT
  Age: 74 Year
  Sex: Female

DRUGS (1)
  1. REPATHA [Suspect]
     Active Substance: EVOLOCUMAB
     Indication: HYPERCHOLESTEROLAEMIA
     Dosage: 150 MG, Q2WK
     Route: 058
     Dates: start: 20160112, end: 20161011

REACTIONS (6)
  - Seizure [Unknown]
  - Nausea [Unknown]
  - Constipation [Unknown]
  - Dysphagia [Unknown]
  - Back pain [Unknown]
  - Rhinorrhoea [Unknown]
